FAERS Safety Report 8853285 (Version 1)
Quarter: 2012Q4

REPORT INFORMATION
  Report Type: 
  Country: US (occurrence: US)
  Receive Date: 20121022
  Receipt Date: 20121022
  Transmission Date: 20130627
  Serious: Yes (Other)
  Sender: FDA-Public Use
  Company Number: US-ROCHE-1125389

PATIENT
  Sex: Male

DRUGS (5)
  1. NUTROPIN [Suspect]
     Indication: CEREBRAL PALSY
     Route: 058
     Dates: start: 19980731
  2. NUTROPIN [Suspect]
     Indication: HYPOPITUITARISM
  3. NUTROPIN [Suspect]
     Indication: GROWTH HORMONE DEFICIENCY
  4. PHENOBARBITAL [Concomitant]
  5. BACLOFEN [Concomitant]

REACTIONS (7)
  - Convulsion [Unknown]
  - Constipation [Unknown]
  - Erythema [Unknown]
  - Hypertonia [Unknown]
  - Muscle spasticity [Unknown]
  - Decreased appetite [Recovered/Resolved]
  - Liquid product physical issue [Unknown]
